FAERS Safety Report 12483425 (Version 1)
Quarter: 2016Q2

REPORT INFORMATION
  Report Type: Spontaneous
  Country: GB (occurrence: GB)
  Receive Date: 20160621
  Receipt Date: 20160621
  Transmission Date: 20160815
  Serious: Yes (Other)
  Sender: FDA-Public Use
  Company Number: GB-AMGEN-GBRSP2016076060

PATIENT
  Age: 76 Year
  Sex: Female

DRUGS (17)
  1. GLYCERYL TRINITRATE [Concomitant]
     Active Substance: NITROGLYCERIN
  2. SALBUTAMOL [Concomitant]
     Active Substance: ALBUTEROL
     Dosage: 100 MUG, UNK
  3. LOSEC [Concomitant]
     Active Substance: OMEPRAZOLE
     Dosage: 20 MG, UNK
  4. ARANESP [Suspect]
     Active Substance: DARBEPOETIN ALFA
     Indication: RED BLOOD CELL COUNT DECREASED
     Dosage: UNK, Q3WK
     Route: 065
  5. ESTRIOL [Concomitant]
     Active Substance: ESTRIOL
  6. SOTALOL. [Concomitant]
     Active Substance: SOTALOL
     Dosage: 120 MG, UNK
  7. ALENDRONATE ACCORD [Concomitant]
     Dosage: 70 MG, UNK
  8. CARDIDE SR [Concomitant]
     Dosage: 1.5 MG, UNK
  9. CELLUVISC                          /00007002/ [Concomitant]
     Dosage: 0.4 ML, UNK
  10. MYCOPHENOLATE MOFETIL. [Concomitant]
     Active Substance: MYCOPHENOLATE MOFETIL
     Dosage: 500 MG, UNK
  11. PREDNISOLONE. [Concomitant]
     Active Substance: PREDNISOLONE
     Dosage: 5 UNK, UNK
  12. ATORVASTATIN [Concomitant]
     Active Substance: ATORVASTATIN
     Dosage: 20 MG, UNK
  13. WARFARIN [Concomitant]
     Active Substance: WARFARIN
  14. CARBOCISTEINE ARROW [Concomitant]
     Dosage: 150 MG, UNK
  15. ADCAL D3 [Concomitant]
     Active Substance: CALCIUM CARBONATE\CHOLECALCIFEROL
     Dosage: 2DF
  16. ALLOPURINOL. [Concomitant]
     Active Substance: ALLOPURINOL
     Dosage: 100 MG, UNK
  17. FERROUS SULFATE. [Concomitant]
     Active Substance: FERROUS SULFATE
     Dosage: 200 MG, UNK

REACTIONS (2)
  - Fatigue [Not Recovered/Not Resolved]
  - Confusional state [Not Recovered/Not Resolved]

NARRATIVE: CASE EVENT DATE: 20160527
